FAERS Safety Report 6708363-9 (Version None)
Quarter: 2010Q2

REPORT INFORMATION
  Report Type: 
  Country: None (occurrence: None)
  Receive Date: 20100503
  Receipt Date: 20100429
  Transmission Date: 20101027
  Serious: Yes (Death)
  Sender: FDA-Public Use
  Company Number: US-GILEAD-2010-0028542

PATIENT
  Sex: Male

DRUGS (8)
  1. LETAIRIS [Suspect]
     Indication: PULMONARY ARTERIAL HYPERTENSION
     Route: 048
     Dates: start: 20100303
  2. REVATIO [Concomitant]
  3. SPIRIVA [Concomitant]
  4. NASONEX [Concomitant]
  5. ALLEGRA [Concomitant]
  6. BENADRYL [Concomitant]
  7. PHENERGAN [Concomitant]
  8. TRAMADOL HCL [Concomitant]

REACTIONS (1)
  - PULMONARY HAEMORRHAGE [None]
